FAERS Safety Report 6643535-3 (Version None)
Quarter: 2010Q1

REPORT INFORMATION
  Report Type: 
  Country: None (occurrence: None)
  Receive Date: 20100320
  Receipt Date: 20100316
  Transmission Date: 20100710
  Serious: Yes (Hospitalization)
  Sender: FDA-Public Use
  Company Number: US-B.I. PHARMACEUTICALS,INC./RIDGEFIELD-2010-BP-02233BP

PATIENT
  Sex: Female

DRUGS (5)
  1. SPIRIVA [Suspect]
     Dosage: 18 MCG
     Route: 055
     Dates: start: 20080101
  2. ADVAIR DISKUS 100/50 [Concomitant]
     Indication: LUNG DISORDER
  3. VITAMIN B-12 [Concomitant]
     Indication: SUPPLEMENTATION THERAPY
  4. CENTRUM [Concomitant]
     Indication: SUPPLEMENTATION THERAPY
  5. METAPROLOL [Concomitant]
     Indication: HEART RATE IRREGULAR

REACTIONS (2)
  - DYSPNOEA [None]
  - PALPITATIONS [None]
